FAERS Safety Report 15630068 (Version 1)
Quarter: 2018Q4

REPORT INFORMATION
  Report Type: Spontaneous
  Country: None (occurrence: US)
  Receive Date: 20181118
  Receipt Date: 20181118
  Transmission Date: 20190205
  Serious: No
  Sender: FDA-Public Use
  Company Number: US-AMPHASTAR PHARMACEUTICALS, INC.-2058988

PATIENT
  Age: 58 Year
  Sex: Female
  Weight: 90.91 kg

DRUGS (9)
  1. ATENOLOL. [Concomitant]
     Active Substance: ATENOLOL
  2. WARFARIN SODIUM. [Concomitant]
     Active Substance: WARFARIN SODIUM
  3. LEVOTHYROXINE. [Concomitant]
     Active Substance: LEVOTHYROXINE
  4. POTASSIUM [Concomitant]
     Active Substance: POTASSIUM
  5. INSULIN [Concomitant]
     Active Substance: INSULIN NOS
  6. LACTULOSE. [Concomitant]
     Active Substance: LACTULOSE
  7. PROTONIX [Concomitant]
     Active Substance: PANTOPRAZOLE SODIUM
  8. ENOXAPARIN SODIUM. [Suspect]
     Active Substance: ENOXAPARIN SODIUM
     Dates: end: 20180728
  9. TOPIRAMATE. [Concomitant]
     Active Substance: TOPIRAMATE

REACTIONS (2)
  - Administration site pain [Recovered/Resolved]
  - Injection site pain [Recovered/Resolved]
